FAERS Safety Report 8254834-6 (Version None)
Quarter: 2012Q2

REPORT INFORMATION
  Report Type: 
  Country: None (occurrence: None)
  Receive Date: 20120403
  Receipt Date: 20120330
  Transmission Date: 20120825
  Serious: Yes (Other)
  Sender: FDA-Public Use
  Company Number: PHHY2012SG026216

PATIENT
  Sex: Male

DRUGS (2)
  1. GLEEVEC [Suspect]
     Indication: GASTROINTESTINAL STROMAL TUMOUR
     Dosage: 400 MG, DAILY
     Dates: start: 20111101, end: 20111101
  2. ANTIHYPERTENSIVE DRUGS [Concomitant]
     Indication: HYPERTENSION

REACTIONS (4)
  - SPINAL DISORDER [None]
  - NEOPLASM MALIGNANT [None]
  - NEOPLASM PROGRESSION [None]
  - RED BLOOD CELL COUNT DECREASED [None]
